FAERS Safety Report 19538797 (Version 1)
Quarter: 2021Q3

REPORT INFORMATION
  Report Type: Spontaneous
  Country: US (occurrence: US)
  Receive Date: 20210714
  Receipt Date: 20210714
  Transmission Date: 20211014
  Serious: No
  Sender: FDA-Public Use
  Company Number: None

PATIENT
  Age: 45 Year
  Sex: Female
  Weight: 97.2 kg

DRUGS (2)
  1. DEFINITY [Suspect]
     Active Substance: PERFLUTREN
     Indication: MYOCARDIAL ISCHAEMIA
     Dosage: ?          OTHER FREQUENCY:GIVE TWICE;?
     Route: 042
     Dates: start: 20210714, end: 20210714
  2. DEFINITY [Concomitant]
     Active Substance: PERFLUTREN
     Dates: start: 20210714, end: 20210714

REACTIONS (1)
  - Back pain [None]

NARRATIVE: CASE EVENT DATE: 20210714
